FAERS Safety Report 7217956-4 (Version None)
Quarter: 2011Q1

REPORT INFORMATION
  Report Type: 
  Country: None (occurrence: None)
  Receive Date: 20110110
  Receipt Date: 20110103
  Transmission Date: 20110831
  Serious: Yes (Other)
  Sender: FDA-Public Use
  Company Number: A0903805A

PATIENT
  Age: 67 Year
  Sex: Female

DRUGS (3)
  1. MULTAQ [Suspect]
     Indication: ATRIAL FIBRILLATION
     Dosage: 400MG TWICE PER DAY
     Route: 048
     Dates: start: 20100903
  2. UNKNOWN [Concomitant]
  3. COREG [Suspect]
     Indication: ATRIAL FIBRILLATION
     Dosage: 3.125MG TWICE PER DAY
     Route: 048
     Dates: start: 20100912, end: 20101114

REACTIONS (7)
  - FATIGUE [None]
  - ATRIAL FIBRILLATION [None]
  - ASTHENIA [None]
  - DYSPNOEA [None]
  - DRUG INEFFECTIVE [None]
  - ALOPECIA [None]
  - PAIN IN EXTREMITY [None]
